FAERS Safety Report 14763985 (Version 26)
Quarter: 2024Q2

REPORT INFORMATION
  Report Type: Spontaneous
  Country: GB (occurrence: GB)
  Receive Date: 20180416
  Receipt Date: 20240604
  Transmission Date: 20240716
  Serious: Yes (Hospitalization)
  Sender: FDA-Public Use
  Company Number: GB-JNJFOC-20180336475

PATIENT
  Age: 35 Year
  Sex: Female

DRUGS (15)
  1. DIAZEPAM [Suspect]
     Active Substance: DIAZEPAM
     Indication: Schizophrenia
     Route: 065
  2. DIAZEPAM [Suspect]
     Active Substance: DIAZEPAM
     Route: 065
  3. DIAZEPAM [Suspect]
     Active Substance: DIAZEPAM
     Route: 065
  4. SERTRALINE [Suspect]
     Active Substance: SERTRALINE HYDROCHLORIDE
     Indication: Schizophrenia
     Dosage: DOSAGE FORM: UNKNOWN
     Route: 065
  5. SERTRALINE [Suspect]
     Active Substance: SERTRALINE HYDROCHLORIDE
     Dosage: DOSAGE FORM: UNKNOWN
     Route: 065
  6. SERTRALINE [Suspect]
     Active Substance: SERTRALINE HYDROCHLORIDE
     Dosage: DOSAGE FORM: UNKNOWN
     Route: 065
  7. OLANZAPINE [Suspect]
     Active Substance: OLANZAPINE
     Indication: Schizophrenia
     Dosage: ORODISPERSIBLE TABLET
     Route: 065
  8. OLANZAPINE [Suspect]
     Active Substance: OLANZAPINE
     Route: 065
  9. OLANZAPINE [Suspect]
     Active Substance: OLANZAPINE
     Route: 065
  10. ARIPIPRAZOLE [Suspect]
     Active Substance: ARIPIPRAZOLE
     Indication: Schizophrenia
     Route: 065
  11. ARIPIPRAZOLE [Suspect]
     Active Substance: ARIPIPRAZOLE
     Route: 065
  12. OMEPRAZOLE [Suspect]
     Active Substance: DONEPEZIL HYDROCHLORIDE\OMEPRAZOLE\OMEPRAZOLE MAGNESIUM
     Indication: Product used for unknown indication
     Route: 065
  13. OMEPRAZOLE [Suspect]
     Active Substance: DONEPEZIL HYDROCHLORIDE\OMEPRAZOLE\OMEPRAZOLE MAGNESIUM
     Indication: Schizophrenia
     Route: 065
  14. RISPERIDONE [Suspect]
     Active Substance: RISPERIDONE
     Indication: Schizophrenia
     Route: 048
  15. RISPERDAL [Suspect]
     Active Substance: RISPERIDONE
     Indication: Schizophrenia
     Route: 048

REACTIONS (8)
  - Social problem [Unknown]
  - Sepsis [Unknown]
  - Treatment noncompliance [Unknown]
  - Disease recurrence [Unknown]
  - Schizophrenia [Unknown]
  - Dehydration [Unknown]
  - Off label use [Unknown]
  - Sepsis [Unknown]
